FAERS Safety Report 11042783 (Version 2)
Quarter: 2015Q2

REPORT INFORMATION
  Report Type: Spontaneous
  Country: RO (occurrence: RO)
  Receive Date: 20150417
  Receipt Date: 20150618
  Transmission Date: 20150821
  Serious: Yes (Other)
  Sender: FDA-Public Use
  Company Number: RO-ROCHE-1564952

PATIENT
  Age: 65 Year
  Sex: Male

DRUGS (1)
  1. ZELBORAF [Suspect]
     Active Substance: VEMURAFENIB
     Indication: METASTATIC MALIGNANT MELANOMA
     Route: 048
     Dates: start: 201502

REACTIONS (2)
  - Metastases to central nervous system [Not Recovered/Not Resolved]
  - Neoplasm [Recovering/Resolving]

NARRATIVE: CASE EVENT DATE: 201502
